FAERS Safety Report 12185822 (Version 1)
Quarter: 2016Q1

REPORT INFORMATION
  Report Type: Spontaneous
  Country: US (occurrence: US)
  Receive Date: 20160317
  Receipt Date: 20160317
  Transmission Date: 20160526
  Serious: No
  Sender: FDA-Public Use
  Company Number: US-AMGEN-USASP2016029751

PATIENT
  Age: 81 Year
  Sex: Female

DRUGS (1)
  1. ENBREL [Suspect]
     Active Substance: ETANERCEPT
     Indication: RHEUMATOID ARTHRITIS
     Dosage: 50 MG, UNK
     Route: 065

REACTIONS (10)
  - Fall [Unknown]
  - Facial bones fracture [Unknown]
  - Injection site mass [Unknown]
  - Injection site pain [Unknown]
  - Injection site rash [Unknown]
  - Mobility decreased [Unknown]
  - Contusion [Unknown]
  - Injection site pruritus [Unknown]
  - Injection site discolouration [Unknown]
  - Walking aid user [Unknown]

NARRATIVE: CASE EVENT DATE: 20151208
